FAERS Safety Report 21004672 (Version 1)
Quarter: 2022Q2

REPORT INFORMATION
  Report Type: Spontaneous
  Country: US (occurrence: None)
  Receive Date: 20220624
  Receipt Date: 20220624
  Transmission Date: 20220721
  Serious: Yes (Hospitalization)
  Sender: FDA-Public Use
  Company Number: None

PATIENT
  Age: 77 Year
  Sex: Male
  Weight: 77.6 kg

DRUGS (12)
  1. CASIRIVIMAB\IMDEVIMAB [Suspect]
     Active Substance: CASIRIVIMAB\IMDEVIMAB
     Indication: COVID-19
     Dosage: OTHER FREQUENCY : ONE TIME;?
     Route: 042
     Dates: start: 20210921, end: 20210921
  2. ALBUTEROL SULFATE [Concomitant]
     Active Substance: ALBUTEROL SULFATE
  3. DEVICE [Concomitant]
     Active Substance: DEVICE
  4. glipizide extended-release [Concomitant]
  5. fluticason fur-umeclidinium-vilanterol [Concomitant]
  6. meoprolol tartrate [Concomitant]
  7. MONTELUKAST [Concomitant]
     Active Substance: MONTELUKAST SODIUM
  8. NIFEDIPINE [Concomitant]
     Active Substance: NIFEDIPINE
  9. RANOLAZINE [Concomitant]
     Active Substance: RANOLAZINE
  10. ROSUVASTATIN [Concomitant]
     Active Substance: ROSUVASTATIN
  11. TAMSULOSIN [Concomitant]
     Active Substance: TAMSULOSIN
  12. XARELTO [Concomitant]
     Active Substance: RIVAROXABAN

REACTIONS (5)
  - Chills [None]
  - Hyperventilation [None]
  - Muscle spasms [None]
  - Muscle rigidity [None]
  - Anaphylactic reaction [None]

NARRATIVE: CASE EVENT DATE: 20210921
